FAERS Safety Report 23611887 (Version 2)
Quarter: 2024Q2

REPORT INFORMATION
  Report Type: Spontaneous
  Country: DE (occurrence: DE)
  Receive Date: 20240308
  Receipt Date: 20240411
  Transmission Date: 20240716
  Serious: Yes (Death, Other)
  Sender: FDA-Public Use
  Company Number: DE-ELI_LILLY_AND_COMPANY-DE202403003806

PATIENT
  Age: 75 Year
  Sex: Male
  Weight: 87 kg

DRUGS (11)
  1. SELPERCATINIB [Suspect]
     Active Substance: SELPERCATINIB
     Indication: Lung neoplasm malignant
     Dosage: 160 MG, BID
     Route: 065
     Dates: start: 20230426
  2. SELPERCATINIB [Suspect]
     Active Substance: SELPERCATINIB
     Dosage: 160 MG, OTHER (ONCE IN THE MORNING, ONCE IN THE EVENING, EVERY OTHER DAY)
     Route: 065
     Dates: end: 20230509
  3. SELPERCATINIB [Suspect]
     Active Substance: SELPERCATINIB
     Dosage: 120 MG, BID
     Route: 065
     Dates: start: 20230510, end: 20230606
  4. TINZAPARIN [Concomitant]
     Active Substance: TINZAPARIN
     Indication: Product used for unknown indication
     Dosage: 1X16.000 IE
  5. ZOFRAN [Concomitant]
     Active Substance: ONDANSETRON HYDROCHLORIDE
     Indication: Product used for unknown indication
     Dosage: 8 MG, BID (PRN)
     Route: 065
  6. PREDNISOLONE [Concomitant]
     Active Substance: PREDNISOLONE
     Indication: Product used for unknown indication
     Dosage: 50 MG, DAILY
     Route: 065
     Dates: start: 20230607, end: 20230613
  7. PREDNISOLONE [Concomitant]
     Active Substance: PREDNISOLONE
     Dosage: 25 MG, DAILY
     Route: 065
     Dates: start: 20230614
  8. PANTOZOL [Concomitant]
     Active Substance: PANTOPRAZOLE SODIUM
     Indication: Product used for unknown indication
     Dosage: 20 MG, DAILY
     Route: 065
  9. CALCIMAGON [CALCIUM] [Concomitant]
     Indication: Product used for unknown indication
     Dosage: UNK UNK, BID (500/400 2X/DAY)
     Route: 065
  10. TRAMADOL [Concomitant]
     Active Substance: TRAMADOL\TRAMADOL HYDROCHLORIDE
     Indication: Product used for unknown indication
  11. MORPHINE SULFATE [Concomitant]
     Active Substance: MORPHINE SULFATE
     Indication: Product used for unknown indication
     Dosage: 10 MG, BID
     Dates: start: 20230606

REACTIONS (3)
  - Cardiac arrest [Fatal]
  - Malignant neoplasm progression [Fatal]
  - Arrhythmia [Unknown]
